FAERS Safety Report 7529276-9 (Version None)
Quarter: 2011Q2

REPORT INFORMATION
  Report Type: 
  Country: None (occurrence: None)
  Receive Date: 20110607
  Receipt Date: 20050711
  Transmission Date: 20111010
  Serious: Yes (Life-Threatening, Hospitalization, Other)
  Sender: FDA-Public Use
  Company Number: PHFR2005GB02293

PATIENT
  Sex: Male

DRUGS (5)
  1. DESLORATADINE [Concomitant]
     Dosage: 5 MG/DAY
  2. CLOZARIL [Suspect]
     Dosage: 300MG/DAY
     Route: 048
     Dates: end: 20050624
  3. VENLAFAXINE [Concomitant]
     Indication: DEPRESSION
     Dosage: 75 MG,PER DAY
     Route: 048
  4. TOLTERODINE TARTRATE [Concomitant]
     Indication: URINARY INCONTINENCE
     Dosage: 4 MG, PER DAY
  5. CLOZARIL [Suspect]
     Dosage: 250 MG, PER DAY
     Route: 048
     Dates: start: 20050609

REACTIONS (7)
  - ARTERIOSCLEROSIS CORONARY ARTERY [None]
  - ARTERIAL OCCLUSIVE DISEASE [None]
  - MYOCARDIAL INFARCTION [None]
  - ELECTROCARDIOGRAM CHANGE [None]
  - ANGINA PECTORIS [None]
  - PERICARDITIS [None]
  - HYPOTENSION [None]
